FAERS Safety Report 19293157 (Version 2)
Quarter: 2021Q2

REPORT INFORMATION
  Report Type: Spontaneous
  Country: IE (occurrence: IE)
  Receive Date: 20210524
  Receipt Date: 20210615
  Transmission Date: 20210717
  Serious: Yes (Death, Other)
  Sender: FDA-Public Use
  Company Number: IE-PFIZER INC-2021534799

PATIENT
  Age: 43 Hour
  Sex: Female
  Weight: 3.1 kg

DRUGS (1)
  1. DINOPROSTONE. [Suspect]
     Active Substance: DINOPROSTONE
     Indication: LABOUR INDUCTION
     Dosage: 3 MG, SINGLE
     Route: 064

REACTIONS (3)
  - Foetal exposure during delivery [Fatal]
  - Haemorrhage intracranial [Fatal]
  - Skull fracture [Fatal]
